FAERS Safety Report 19997479 (Version 2)
Quarter: 2021Q4

REPORT INFORMATION
  Report Type: Other
  Country: US (occurrence: None)
  Receive Date: 20211026
  Receipt Date: 20211124
  Transmission Date: 20220303
  Serious: Yes (Hospitalization, Other)
  Sender: FDA-Public Use
  Company Number: US-ROCHE-2936995

PATIENT
  Age: 30 Year
  Sex: Male

DRUGS (9)
  1. OCREVUS [Suspect]
     Active Substance: OCRELIZUMAB
     Indication: Multiple sclerosis
     Dosage: DATE OF TREATMENT: 14/MAY/2018, 12/MAY/2021,
     Route: 065
     Dates: start: 20180430
  2. OCREVUS [Suspect]
     Active Substance: OCRELIZUMAB
     Indication: Primary progressive multiple sclerosis
     Route: 042
  3. BACLOFEN [Concomitant]
     Active Substance: BACLOFEN
  4. FISH OIL [Concomitant]
     Active Substance: FISH OIL
  5. IBUPROFEN [Concomitant]
     Active Substance: IBUPROFEN
  6. LAMOTRIGINE [Concomitant]
     Active Substance: LAMOTRIGINE
  7. NAPROXEN [Concomitant]
     Active Substance: NAPROXEN
  8. CANNABIDIOL [Concomitant]
     Active Substance: CANNABIDIOL
  9. ZOLOFT [Concomitant]
     Active Substance: SERTRALINE HYDROCHLORIDE
     Indication: Depression
     Route: 048

REACTIONS (3)
  - Memory impairment [Unknown]
  - Seizure [Recovered/Resolved]
  - Pneumonia [Recovered/Resolved]

NARRATIVE: CASE EVENT DATE: 20210201
